FAERS Safety Report 5577599-5 (Version None)
Quarter: 2007Q4

REPORT INFORMATION
  Report Type: 
  Country: None (occurrence: None)
  Receive Date: 20071230
  Receipt Date: 20071228
  Transmission Date: 20080405
  Serious: Yes (Other)
  Sender: FDA-Public Use
  Company Number: DK-ALLERGAN-0711323US

PATIENT
  Sex: Male

DRUGS (1)
  1. BOTOX [Suspect]
     Indication: MUSCLE SPASTICITY
     Dosage: UNK, SINGLE
     Dates: start: 20070817, end: 20070817

REACTIONS (5)
  - ASTHENIA [None]
  - DYSPHAGIA [None]
  - FATIGUE [None]
  - MASTICATION DISORDER [None]
  - SPEECH DISORDER [None]
